FAERS Safety Report 4880060-4 (Version None)
Quarter: 2006Q1

REPORT INFORMATION
  Report Type: 
  Country: None (occurrence: None)
  Receive Date: 20060111
  Receipt Date: 20051230
  Transmission Date: 20060701
  Serious: Yes (Disabling, Other)
  Sender: FDA-Public Use
  Company Number: HQWYE172304JAN06

PATIENT
  Age: 56 Year
  Sex: Female

DRUGS (10)
  1. RAPAMUNE [Suspect]
     Indication: PROPHYLAXIS AGAINST TRANSPLANT REJECTION
     Dosage: 6 MG 1X PER 1 DAY, ORAL
     Route: 048
     Dates: start: 20041105, end: 20051227
  2. PREDNISONE [Suspect]
     Indication: PROPHYLAXIS AGAINST TRANSPLANT REJECTION
     Dosage: 10 MG 1X PER 1 DAY, ORAL
     Route: 048
  3. ZENAPAX [Suspect]
     Indication: PROPHYLAXIS AGAINST TRANSPLANT REJECTION
  4. METOPROLOL [Concomitant]
  5. ALTACE [Concomitant]
  6. NEXIUM [Concomitant]
  7. BACTRIM [Concomitant]
  8. LORAZEPAM [Concomitant]
  9. PRAVACHOL [Concomitant]
  10. ASPIRIN [Concomitant]

REACTIONS (17)
  - ANTINUCLEAR ANTIBODY POSITIVE [None]
  - ANTITHROMBIN III INCREASED [None]
  - BLOOD PRESSURE SYSTOLIC INCREASED [None]
  - CATARACT SUBCAPSULAR [None]
  - CYST [None]
  - EYE DISORDER [None]
  - EYELID PTOSIS [None]
  - KIDNEY TRANSPLANT REJECTION [None]
  - MASTOIDITIS [None]
  - OPTIC NERVE DISORDER [None]
  - OPTIC NEUROPATHY [None]
  - PROTHROMBIN LEVEL INCREASED [None]
  - PUPILLARY REFLEX IMPAIRED [None]
  - RENAL TUBULAR NECROSIS [None]
  - SCOTOMA [None]
  - SINUSITIS [None]
  - VISUAL FIELD DEFECT [None]
